FAERS Safety Report 17967237 (Version 1)
Quarter: 2020Q3

REPORT INFORMATION
  Report Type: Spontaneous
  Country: US (occurrence: US)
  Receive Date: 20200701
  Receipt Date: 20200701
  Transmission Date: 20201103
  Serious: Yes (Other)
  Sender: FDA-Public Use
  Company Number: NVSC2020US141634

PATIENT
  Age: 53 Year
  Sex: Female

DRUGS (4)
  1. RITUXIMAB. [Suspect]
     Active Substance: RITUXIMAB
     Indication: PEMPHIGOID
     Dosage: UNK
     Route: 065
  2. NICOTINAMIDE [Suspect]
     Active Substance: NIACINAMIDE
     Indication: PEMPHIGOID
     Dosage: UNK
     Route: 065
  3. DOXYCYCLINE. [Suspect]
     Active Substance: DOXYCYCLINE
     Indication: PEMPHIGOID
     Dosage: UNK
     Route: 065
  4. AZATHIOPRINE. [Suspect]
     Active Substance: AZATHIOPRINE
     Indication: PEMPHIGOID
     Dosage: UNK
     Route: 065

REACTIONS (2)
  - Pemphigoid [Unknown]
  - Product use in unapproved indication [Unknown]
